FAERS Safety Report 6738403-2 (Version None)
Quarter: 2010Q2

REPORT INFORMATION
  Report Type: 
  Country: None (occurrence: None)
  Receive Date: 20100524
  Receipt Date: 20100514
  Transmission Date: 20101027
  Serious: Yes (Other)
  Sender: FDA-Public Use
  Company Number: US-ASTRAZENECA-2010SE22789

PATIENT
  Age: 42 Year
  Sex: Male

DRUGS (2)
  1. CRESTOR [Suspect]
     Route: 048
  2. REBIF [Suspect]
     Route: 058
     Dates: start: 20071107

REACTIONS (2)
  - CENTRAL NERVOUS SYSTEM LESION [None]
  - HEPATOTOXICITY [None]
